FAERS Safety Report 25389134 (Version 1)
Quarter: 2025Q2

REPORT INFORMATION
  Report Type: Spontaneous
  Country: US (occurrence: US)
  Receive Date: 20250603
  Receipt Date: 20250603
  Transmission Date: 20250717
  Serious: No
  Sender: CHIESI
  Company Number: US-CHIESI-2025CHF01266

PATIENT
  Age: 26 Year
  Sex: Female

DRUGS (1)
  1. LAMZEDE [Suspect]
     Active Substance: VELMANASE ALFA-TYCV
     Indication: Alpha-mannosidosis
     Dosage: 1 MILLIGRAM/KILOGRAM, QW
     Route: 065
     Dates: start: 20250211

REACTIONS (1)
  - Fatigue [Recovered/Resolved]

NARRATIVE: CASE EVENT DATE: 20250211
